FAERS Safety Report 12626407 (Version 1)
Quarter: 2016Q3

REPORT INFORMATION
  Report Type: Spontaneous
  Country: ES (occurrence: ES)
  Receive Date: 20160805
  Receipt Date: 20160805
  Transmission Date: 20161109
  Serious: Yes (Hospitalization)
  Sender: FDA-Public Use
  Company Number: ES-JNJFOC-20160800143

PATIENT
  Age: 59 Year
  Sex: Female
  Weight: 93 kg

DRUGS (14)
  1. STELARA [Suspect]
     Active Substance: USTEKINUMAB
     Indication: PSORIASIS
     Dosage: REINTRODUCED 1 DOSE??0,4,12 WEEK
     Route: 058
     Dates: start: 20151204
  2. STELARA [Suspect]
     Active Substance: USTEKINUMAB
     Indication: PSORIASIS
     Dosage: 0, 4, 12 WEEKS
     Route: 058
     Dates: start: 20140306, end: 201410
  3. CLOBETASOL [Concomitant]
     Active Substance: CLOBETASOL
     Route: 065
  4. VORTIOXETINE [Concomitant]
     Active Substance: VORTIOXETINE
     Route: 065
  5. STELARA [Suspect]
     Active Substance: USTEKINUMAB
     Indication: PSORIASIS
     Route: 058
     Dates: start: 20160617
  6. FESOTERODINE [Concomitant]
     Active Substance: FESOTERODINE
     Route: 065
  7. PENTOXIFILINA [Concomitant]
     Active Substance: PENTOXIFYLLINE
     Route: 065
  8. BETAHISTINE [Concomitant]
     Active Substance: BETAHISTINE
     Route: 065
  9. METFORMIN [Concomitant]
     Active Substance: METFORMIN HYDROCHLORIDE
     Route: 065
  10. TRAZODONE [Concomitant]
     Active Substance: TRAZODONE HYDROCHLORIDE
     Route: 065
  11. OMEPRAZOLE. [Concomitant]
     Active Substance: OMEPRAZOLE
     Route: 065
  12. QUETIAPINE. [Concomitant]
     Active Substance: QUETIAPINE
     Route: 065
  13. CLOTIAPINE [Concomitant]
     Active Substance: CLOTHIAPINE
     Route: 065
  14. LORAZEPAM. [Concomitant]
     Active Substance: LORAZEPAM
     Route: 065

REACTIONS (3)
  - Inappropriate schedule of drug administration [Unknown]
  - Mental disorder [Unknown]
  - Off label use [Unknown]

NARRATIVE: CASE EVENT DATE: 201410
